FAERS Safety Report 11344002 (Version 1)
Quarter: 2015Q3

REPORT INFORMATION
  Report Type: Spontaneous
  Country: US (occurrence: None)
  Receive Date: 20150804
  Receipt Date: 20150804
  Transmission Date: 20151125
  Serious: No
  Sender: FDA-Public Use
  Company Number: None

PATIENT
  Age: 10 Year
  Sex: Female

DRUGS (2)
  1. WHEY PROTEIN SUPPLEMENT [Concomitant]
  2. OMNITROPE [Suspect]
     Active Substance: SOMATROPIN
     Route: 058
     Dates: start: 20150619, end: 20150713

REACTIONS (2)
  - Diplopia [None]
  - Vision blurred [None]

NARRATIVE: CASE EVENT DATE: 20150713
